FAERS Safety Report 22122959 (Version 2)
Quarter: 2024Q3

REPORT INFORMATION
  Report Type: Spontaneous
  Country: GB (occurrence: GB)
  Receive Date: 20230322
  Receipt Date: 20240809
  Transmission Date: 20241017
  Serious: No
  Sender: CELLTRION
  Company Number: GB-CELLTRION INC.-2023GB005941

PATIENT

DRUGS (2)
  1. INFLIXIMAB [Suspect]
     Active Substance: INFLIXIMAB
     Indication: Behcet^s syndrome
     Dosage: REMSIMA 120MG PREFILLED PEN
     Route: 058
     Dates: start: 202212
  2. INFLIXIMAB [Suspect]
     Active Substance: INFLIXIMAB
     Dosage: REMSIMA 120MG PREFILLED PEN
     Route: 058
     Dates: start: 202301

REACTIONS (1)
  - Off label use [Unknown]
